FAERS Safety Report 5213952-7 (Version None)
Quarter: 2007Q1

REPORT INFORMATION
  Report Type: 
  Country: None (occurrence: None)
  Receive Date: 20070122
  Receipt Date: 20070111
  Transmission Date: 20070707
  Serious: Yes (Hospitalization, Other)
  Sender: FDA-Public Use
  Company Number: GB-JNJFOC-20070102481

PATIENT
  Sex: Female
  Weight: 61 kg

DRUGS (11)
  1. REMICADE [Suspect]
     Indication: RHEUMATOID ARTHRITIS
     Route: 042
  2. METHOTREXATE [Concomitant]
  3. PREDNISOLONE [Concomitant]
  4. AMITRIPTYLINE HCL [Concomitant]
  5. CO-PROXAMOL [Concomitant]
  6. DIDRONEL [Concomitant]
  7. DIHYDROCODEINE BITARTRATE INJ [Concomitant]
  8. FOLIC ACID [Concomitant]
  9. FROBEN [Concomitant]
  10. LOSEC [Concomitant]
  11. LEVOTHYROXINE SODIUM [Concomitant]

REACTIONS (1)
  - JOINT DISLOCATION [None]
